FAERS Safety Report 23526339 (Version 1)
Quarter: 2024Q1

REPORT INFORMATION
  Report Type: Spontaneous
  Country: US (occurrence: None)
  Receive Date: 20240214
  Receipt Date: 20240214
  Transmission Date: 20240410
  Serious: Yes (Death)
  Sender: FDA-Public Use
  Company Number: None

PATIENT
  Age: 82 Year
  Sex: Male

DRUGS (1)
  1. POMALYST [Suspect]
     Active Substance: POMALIDOMIDE
     Indication: Plasma cell myeloma
     Dosage: FREQUENCY : DAILY;?
     Route: 048
     Dates: start: 20231201, end: 20231215

REACTIONS (5)
  - COVID-19 [None]
  - Renal failure [None]
  - Haemodialysis [None]
  - Unresponsive to stimuli [None]
  - Pulse absent [None]

NARRATIVE: CASE EVENT DATE: 20231215
